FAERS Safety Report 24283169 (Version 2)
Quarter: 2024Q4

REPORT INFORMATION
  Report Type: Report from Study
  Country: DE (occurrence: DE)
  Receive Date: 20240904
  Receipt Date: 20241202
  Transmission Date: 20250114
  Serious: Yes (Other)
  Sender: MYLAN
  Company Number: DE-ALKEM LABORATORIES LIMITED-DE-ALKEM-2024-14590

PATIENT
  Age: 41 Year
  Sex: Male

DRUGS (16)
  1. PREGABALIN [Suspect]
     Active Substance: PREGABALIN
     Indication: Drug abuse
     Dosage: UNK
     Route: 048
  2. BROMAZEPAM [Suspect]
     Active Substance: BROMAZEPAM
     Indication: Drug abuse
     Dosage: UNK
     Route: 048
  3. TRAMADOL [Suspect]
     Active Substance: TRAMADOL
     Indication: Drug abuse
     Dosage: UNK
     Route: 048
  4. MIRTAZAPINE [Suspect]
     Active Substance: MIRTAZAPINE
     Indication: Drug abuse
     Dosage: UNK
     Route: 048
  5. OXAZEPAM [Suspect]
     Active Substance: OXAZEPAM
     Indication: Drug abuse
     Dosage: UNK
     Route: 048
  6. DULOXETINE [Suspect]
     Active Substance: DULOXETINE
     Indication: Drug abuse
     Dosage: UNK
     Route: 048
  7. LORAZEPAM [Suspect]
     Active Substance: LORAZEPAM
     Indication: Drug abuse
     Dosage: UNK
     Route: 048
  8. TRIMIPRAMINE [Suspect]
     Active Substance: TRIMIPRAMINE
     Indication: Drug abuse
     Dosage: UNK
     Route: 048
  9. DIAZEPAM [Suspect]
     Active Substance: DIAZEPAM
     Indication: Drug abuse
     Dosage: UNK
     Route: 048
  10. FENTANYL [Suspect]
     Active Substance: FENTANYL
     Indication: Drug abuse
     Dosage: UNK
     Route: 048
  11. ALCOHOL [Suspect]
     Active Substance: ALCOHOL
     Indication: Product used for unknown indication
     Dosage: UNK
     Route: 065
  12. MORPHINE [Suspect]
     Active Substance: MORPHINE
     Indication: Drug abuse
     Dosage: UNK
     Route: 048
  13. BUPROPION [Suspect]
     Active Substance: BUPROPION
     Indication: Drug abuse
     Dosage: UNK
     Route: 048
  14. NORDAZEPAM [Suspect]
     Active Substance: NORDAZEPAM
     Indication: Drug abuse
     Dosage: UNK
     Route: 048
  15. CODEINE [Suspect]
     Active Substance: CODEINE
     Indication: Drug abuse
     Dosage: UNK
     Route: 048
  16. METHADONE [Suspect]
     Active Substance: METHADONE HYDROCHLORIDE
     Indication: Drug abuse
     Dosage: UNK
     Route: 048

REACTIONS (2)
  - Drug abuse [Unknown]
  - Aggression [Unknown]
